FAERS Safety Report 5958500-9 (Version None)
Quarter: 2008Q4

REPORT INFORMATION
  Report Type: 
  Country: None (occurrence: None)
  Receive Date: 20081119
  Receipt Date: 20081106
  Transmission Date: 20090506
  Serious: Yes (Hospitalization)
  Sender: FDA-Public Use
  Company Number: PHBS2008IT06281

PATIENT
  Age: 4 Year
  Sex: Female

DRUGS (1)
  1. PAMIDRONATE DISODIUM [Suspect]
     Indication: FIBROUS DYSPLASIA OF BONE
     Route: 042

REACTIONS (5)
  - BONE DENSITY DECREASED [None]
  - FRACTURE [None]
  - OSTEOTOMY [None]
  - RESORPTION BONE INCREASED [None]
  - X-RAY LIMB ABNORMAL [None]
